FAERS Safety Report 8117644-6 (Version None)
Quarter: 2012Q1

REPORT INFORMATION
  Report Type: 
  Country: None (occurrence: None)
  Receive Date: 20120207
  Receipt Date: 20120125
  Transmission Date: 20120608
  Serious: Yes (Hospitalization)
  Sender: FDA-Public Use
  Company Number: TW-PAR PHARMACEUTICAL, INC-2012SCPR004005

PATIENT

DRUGS (4)
  1. OLANZAPINE [Suspect]
     Indication: PRODUCT USED FOR UNKNOWN INDICATION
     Dosage: 20 MG, / DAY
     Route: 065
  2. QUETIAPINE [Suspect]
     Indication: MANIA
     Dosage: 400 MG, / DAY
     Route: 065
  3. VALPROIC ACID [Suspect]
     Indication: MANIA
     Dosage: 1000 MG, / DAY
     Route: 065
  4. LITHIUM CARBONATE [Concomitant]
     Indication: PRODUCT USED FOR UNKNOWN INDICATION
     Dosage: 900 MG, / DAY
     Route: 065

REACTIONS (6)
  - DRUG HYPERSENSITIVITY [None]
  - PYREXIA [None]
  - HEPATITIS [None]
  - NEUTROPENIA [None]
  - THROMBOCYTOPENIA [None]
  - TOXIC SKIN ERUPTION [None]
